FAERS Safety Report 20270620 (Version 2)
Quarter: 2022Q1

REPORT INFORMATION
  Report Type: Spontaneous
  Country: US (occurrence: None)
  Receive Date: 20220101
  Receipt Date: 20220110
  Transmission Date: 20220423
  Serious: No
  Sender: FDA-Public Use
  Company Number: 2021A864305

PATIENT
  Age: 737 Month
  Sex: Female
  Weight: 67.1 kg

DRUGS (1)
  1. FASENRA [Suspect]
     Active Substance: BENRALIZUMAB
     Dosage: 100.0MG AS REQUIRED
     Route: 058

REACTIONS (4)
  - Hypertension [Not Recovered/Not Resolved]
  - Product dose omission issue [Unknown]
  - Unevaluable event [Unknown]
  - Product dispensing issue [Unknown]

NARRATIVE: CASE EVENT DATE: 20211101
